FAERS Safety Report 4339363-4 (Version None)
Quarter: 2004Q2

REPORT INFORMATION
  Report Type: 
  Country: None (occurrence: None)
  Receive Date: 20040412
  Receipt Date: 20040402
  Transmission Date: 20050107
  Serious: Yes (Hospitalization)
  Sender: FDA-Public Use
  Company Number: 04P-163-0255946-00

PATIENT
  Age: 2 Year
  Sex: Female

DRUGS (1)
  1. OMNICEF [Suspect]
     Indication: PHARYNGITIS STREPTOCOCCAL
     Dosage: PER ORAL
     Route: 048
     Dates: start: 20040301, end: 20040301

REACTIONS (1)
  - CONVULSION [None]
